FAERS Safety Report 16962930 (Version 2)
Quarter: 2020Q1

REPORT INFORMATION
  Report Type: Report from Study
  Country: GB (occurrence: GB)
  Receive Date: 20191025
  Receipt Date: 20200213
  Transmission Date: 20200409
  Serious: Yes (Other)
  Sender: FDA-Public Use
  Company Number: GB-JNJFOC-20191025462

PATIENT
  Sex: Female

DRUGS (2)
  1. STELARA [Suspect]
     Active Substance: USTEKINUMAB
     Indication: PSORIASIS
     Route: 058
     Dates: start: 2013
  2. DEPIXOL                            /00109702/ [Concomitant]
     Active Substance: FLUPENTIXOL DIHYDROCHLORIDE

REACTIONS (3)
  - Lower respiratory tract infection [Recovered/Resolved]
  - Psoriasis [Unknown]
  - Product dose omission [Unknown]

NARRATIVE: CASE EVENT DATE: 2019
